FAERS Safety Report 18907737 (Version 1)
Quarter: 2021Q1

REPORT INFORMATION
  Report Type: Spontaneous
  Country: GB (occurrence: GB)
  Receive Date: 20210218
  Receipt Date: 20210218
  Transmission Date: 20210420
  Serious: No
  Sender: FDA-Public Use
  Company Number: GB-ALKEM LABORATORIES LIMITED-GB-ALKEM-2020-09039

PATIENT
  Age: 72 Year
  Sex: Male

DRUGS (1)
  1. CEPHALEXIN. [Suspect]
     Active Substance: CEPHALEXIN
     Indication: PROPHYLAXIS URINARY TRACT INFECTION
     Dosage: 125 MILLIGRAM, QD (EVERY 1 DAY)
     Route: 048

REACTIONS (2)
  - Reaction to excipient [Unknown]
  - Blood glucose increased [Not Recovered/Not Resolved]
